FAERS Safety Report 5319720-X (Version None)
Quarter: 2007Q2

REPORT INFORMATION
  Report Type: 
  Country: None (occurrence: None)
  Receive Date: 20070502
  Receipt Date: 20070416
  Transmission Date: 20071010
  Serious: Yes (Death, Hospitalization)
  Sender: FDA-Public Use
  Company Number: 2007BI006331

PATIENT
  Age: 65 Year
  Sex: Female

DRUGS (5)
  1. AVONEX [Suspect]
     Indication: MULTIPLE SCLEROSIS
     Dosage: 30 UG; QW; IM
     Route: 030
     Dates: start: 20061213, end: 20070117
  2. TANATRIL [Concomitant]
  3. ROHYPNOL [Concomitant]
  4. LENDRMIN [Concomitant]
  5. FENAZOL [Concomitant]

REACTIONS (4)
  - DERMATITIS DIAPER [None]
  - HAEMORRHAGIC CEREBRAL INFARCTION [None]
  - MYDRIASIS [None]
  - RESPIRATORY ARREST [None]
